FAERS Safety Report 14095910 (Version 1)
Quarter: 2017Q4

REPORT INFORMATION
  Report Type: Spontaneous
  Country: CH (occurrence: CH)
  Receive Date: 20171016
  Receipt Date: 20171016
  Transmission Date: 20180321
  Serious: Yes (Disabling, Other)
  Sender: FDA-Public Use
  Company Number: CH-PFIZER INC-2017438110

PATIENT
  Age: 45 Year
  Sex: Female

DRUGS (2)
  1. EFFEXOR XR [Suspect]
     Active Substance: VENLAFAXINE HYDROCHLORIDE
     Dosage: 37.5 MG, 1X/DAY
     Route: 048
     Dates: start: 20170724, end: 20170821
  2. EFFEXOR XR [Suspect]
     Active Substance: VENLAFAXINE HYDROCHLORIDE
     Indication: ANXIETY DISORDER
     Dosage: 75MG, 1X/DAY
     Route: 048
     Dates: start: 20170113, end: 20170724

REACTIONS (8)
  - Neuralgia [Recovered/Resolved]
  - Suicidal ideation [Recovered/Resolved]
  - Photopsia [Recovered/Resolved]
  - Withdrawal syndrome [Recovered/Resolved]
  - Paraesthesia oral [Recovered/Resolved]
  - Diarrhoea [Recovered/Resolved]
  - Vomiting [Recovered/Resolved]
  - Crying [Recovered/Resolved]

NARRATIVE: CASE EVENT DATE: 20170821
